FAERS Safety Report 4980409-8 (Version None)
Quarter: 2006Q2

REPORT INFORMATION
  Report Type: 
  Country: None (occurrence: None)
  Receive Date: 20060424
  Receipt Date: 20060420
  Transmission Date: 20061013
  Serious: Yes (Other)
  Sender: FDA-Public Use
  Company Number: US-GLAXOSMITHKLINE-A0602623A

PATIENT
  Age: 68 Year
  Sex: Female

DRUGS (5)
  1. PAXIL [Suspect]
     Indication: DEPRESSION
     Dosage: 20MG PER DAY
     Route: 048
  2. COUMADIN [Concomitant]
  3. UNKNOWN MEDICATION [Concomitant]
  4. TOPAMAX [Concomitant]
  5. KLONOPIN [Concomitant]

REACTIONS (7)
  - DEPRESSED MOOD [None]
  - DEPRESSION [None]
  - DISSOCIATION [None]
  - DRUG INEFFECTIVE [None]
  - EMOTIONAL DISORDER [None]
  - MOOD ALTERED [None]
  - SUICIDAL IDEATION [None]
